FAERS Safety Report 9712312 (Version 1)
Quarter: 2013Q4

REPORT INFORMATION
  Report Type: Spontaneous
  Country: US (occurrence: US)
  Receive Date: 20131126
  Receipt Date: 20131126
  Transmission Date: 20140711
  Serious: No
  Sender: FDA-Public Use
  Company Number: US-BRISTOL-MYERS SQUIBB COMPANY-18862987

PATIENT
  Age: 53 Year
  Sex: Male
  Weight: 97.05 kg

DRUGS (7)
  1. BYDUREON [Suspect]
     Dosage: BYDUREON INJECTION
  2. GLUCOPHAGE [Concomitant]
  3. GLUCOTROL [Concomitant]
  4. INDOMETHACIN [Concomitant]
  5. LISINOPRIL [Concomitant]
  6. PRAVACHOL [Concomitant]
  7. SYNTHROID [Concomitant]

REACTIONS (1)
  - Injection site swelling [Unknown]
